FAERS Safety Report 8459661-2 (Version None)
Quarter: 2012Q2

REPORT INFORMATION
  Report Type: 
  Country: None (occurrence: None)
  Receive Date: 20120622
  Receipt Date: 20120613
  Transmission Date: 20120825
  Serious: Yes (Hospitalization, Other)
  Sender: FDA-Public Use
  Company Number: CA-JNJFOC-20120604065

PATIENT
  Sex: Male
  Weight: 140 kg

DRUGS (10)
  1. REMICADE [Suspect]
     Route: 042
     Dates: start: 20120607
  2. INSULIN [Concomitant]
     Route: 065
  3. REMICADE [Suspect]
     Indication: PSORIASIS
     Dosage: HAD 3 INFLIXIMAB INFUSION
     Route: 042
     Dates: start: 20120414
  4. RABEPRAZOLE SODIUM [Concomitant]
     Route: 065
  5. BYETTA [Concomitant]
     Route: 065
  6. DILTIAZEM HYDROCHOLORIDE [Concomitant]
     Route: 065
  7. ASPIRIN [Concomitant]
     Route: 065
  8. RAMIPRIL [Concomitant]
     Route: 065
  9. METFORMIN HCL [Concomitant]
     Route: 065
  10. HYDROCHLOROTHIAZIDE [Concomitant]
     Route: 065

REACTIONS (2)
  - THROMBOSIS [None]
  - OBESITY SURGERY [None]
